FAERS Safety Report 20526846 (Version 1)
Quarter: 2022Q1

REPORT INFORMATION
  Report Type: Spontaneous
  Country: US (occurrence: US)
  Receive Date: 20220228
  Receipt Date: 20220228
  Transmission Date: 20220423
  Serious: No
  Sender: FDA-Public Use
  Company Number: US-PFIZER INC-202101013435

PATIENT
  Age: 66 Year
  Sex: Female

DRUGS (1)
  1. VFEND [Suspect]
     Active Substance: VORICONAZOLE
     Dosage: 200 MG, 2X/DAY (TAKE 1 TABLET BY MOUTH EVERY 12 HOURS )
     Route: 048

REACTIONS (4)
  - Yellow skin [Unknown]
  - Headache [Unknown]
  - Abdominal pain upper [Unknown]
  - Toxicity to various agents [Unknown]
